FAERS Safety Report 22349344 (Version 1)
Quarter: 2023Q2

REPORT INFORMATION
  Report Type: Spontaneous
  Country: SI (occurrence: SI)
  Receive Date: 20230522
  Receipt Date: 20230522
  Transmission Date: 20230722
  Serious: Yes (Other)
  Sender: FDA-Public Use
  Company Number: SI-BAYER-2023A069587

PATIENT
  Age: 42 Year
  Sex: Female

DRUGS (2)
  1. RIVAROXABAN [Suspect]
     Active Substance: RIVAROXABAN
     Indication: Product used for unknown indication
     Dosage: 15 MG, BID
     Route: 048
  2. RIVAROXABAN [Suspect]
     Active Substance: RIVAROXABAN
     Dosage: 20 MG, QD
     Route: 048

REACTIONS (8)
  - Dyspnoea [Unknown]
  - Pulmonary embolism [Unknown]
  - Haemoptysis [Unknown]
  - Dyspnoea [Unknown]
  - Pleuritic pain [Unknown]
  - Cough [Unknown]
  - Body temperature increased [Unknown]
  - Influenza [Unknown]
